FAERS Safety Report 8433462-3 (Version None)
Quarter: 2012Q2

REPORT INFORMATION
  Report Type: 
  Country: None (occurrence: None)
  Receive Date: 20120613
  Receipt Date: 20120607
  Transmission Date: 20120825
  Serious: Yes (Hospitalization)
  Sender: FDA-Public Use
  Company Number: US-BAYER-2012-058147

PATIENT
  Age: 30 Year
  Sex: Female
  Weight: 78.458 kg

DRUGS (1)
  1. BEYAZ [Suspect]

REACTIONS (1)
  - PULMONARY EMBOLISM [None]
